FAERS Safety Report 5838420-0 (Version None)
Quarter: 2008Q3

REPORT INFORMATION
  Report Type: 
  Country: None (occurrence: None)
  Receive Date: 20080808
  Receipt Date: 20080730
  Transmission Date: 20090109
  Serious: Yes (Disabling)
  Sender: FDA-Public Use
  Company Number: GB-ASTRAZENECA-2008GB01477

PATIENT
  Age: 53 Year
  Sex: Male
  Weight: 134 kg

DRUGS (10)
  1. ROSUVASTATIN CALCIUM [Suspect]
     Indication: LIPIDS INCREASED
     Route: 048
     Dates: end: 20080701
  2. ADALAT [Concomitant]
     Indication: BLOOD PRESSURE INCREASED
     Route: 048
     Dates: start: 20050101
  3. ASPIRIN [Concomitant]
     Dates: start: 20040101
  4. DOXAZOSIN MESYLATE [Concomitant]
     Indication: BLOOD PRESSURE INCREASED
     Route: 048
     Dates: start: 20040101
  5. FELODIPINE [Concomitant]
     Indication: BLOOD PRESSURE INCREASED
     Route: 048
     Dates: start: 20060101
  6. GLIMEPIRIDE [Concomitant]
     Indication: DIABETES MELLITUS
     Route: 048
     Dates: start: 20080328
  7. METFORMIN HCL [Concomitant]
     Indication: DIABETES MELLITUS
     Dates: start: 20070227
  8. RAMIPRIL [Concomitant]
     Indication: BLOOD PRESSURE INCREASED
     Dates: start: 20030101
  9. ROSIGLITAZONE [Concomitant]
     Indication: DIABETES MELLITUS
     Dates: start: 20070227
  10. VENTOLIN [Concomitant]
     Indication: ASTHMA
     Route: 055
     Dates: start: 20040101

REACTIONS (1)
  - DYSKINESIA [None]
